FAERS Safety Report 5801524-2 (Version None)
Quarter: 2008Q3

REPORT INFORMATION
  Report Type: 
  Country: None (occurrence: None)
  Receive Date: 20080702
  Receipt Date: 20080617
  Transmission Date: 20090109
  Serious: Yes (Hospitalization)
  Sender: FDA-Public Use
  Company Number: 14335

PATIENT
  Age: 47 Year
  Sex: Female

DRUGS (2)
  1. MORPHINE SULFATE [Suspect]
     Indication: MIGRAINE
     Dosage: 60MG BID OR TID, ORAL
     Route: 048
     Dates: start: 20080502
  2. MEDICATION FOR BLOOD PRESSURE [Concomitant]

REACTIONS (5)
  - COMA [None]
  - MYOCARDIAL INFARCTION [None]
  - OVERDOSE [None]
  - PHARMACEUTICAL PRODUCT COMPLAINT [None]
  - RESPIRATORY DEPRESSION [None]
